FAERS Safety Report 13163158 (Version 1)
Quarter: 2017Q1

REPORT INFORMATION
  Report Type: Spontaneous
  Country: GB (occurrence: GB)
  Receive Date: 20170130
  Receipt Date: 20170130
  Transmission Date: 20170428
  Serious: Yes (Other)
  Sender: FDA-Public Use
  Company Number: GB-TEVA-732299ACC

PATIENT
  Age: 32 Year
  Sex: Female
  Weight: 72.11 kg

DRUGS (2)
  1. PAROXETINE. [Suspect]
     Active Substance: PAROXETINE
     Indication: PERSONALITY DISORDER
     Dosage: REDUCED FROM 20 MG PER DAY TO ALTERNATING 20 AND 10MG.
     Route: 048
     Dates: start: 2013
  2. PAROXETINE. [Suspect]
     Active Substance: PAROXETINE
     Indication: PERSONALITY DISORDER
     Route: 048
     Dates: start: 2013

REACTIONS (5)
  - Mood altered [Not Recovered/Not Resolved]
  - Intentional overdose [Recovered/Resolved]
  - Insomnia [Not Recovered/Not Resolved]
  - Anxiety [Not Recovered/Not Resolved]
  - Hyperhidrosis [Not Recovered/Not Resolved]
